FAERS Safety Report 13413593 (Version 3)
Quarter: 2018Q1

REPORT INFORMATION
  Report Type: Spontaneous
  Country: US (occurrence: US)
  Receive Date: 20170406
  Receipt Date: 20180317
  Transmission Date: 20180508
  Serious: No
  Sender: FDA-Public Use
  Company Number: US-JNJFOC-20170317929

PATIENT
  Sex: Male

DRUGS (7)
  1. RISPERIDONE. [Suspect]
     Active Substance: RISPERIDONE
     Indication: SLEEP DISORDER
     Route: 048
     Dates: start: 201608
  2. RISPERDAL [Suspect]
     Active Substance: RISPERIDONE
     Indication: SCHIZOPHRENIA
     Route: 048
     Dates: start: 1994, end: 2004
  3. RISPERIDONE. [Suspect]
     Active Substance: RISPERIDONE
     Indication: SCHIZOPHRENIA
     Dosage: AT VARYING DOSE OF 2 MG AND 3 MG
     Route: 048
     Dates: start: 20130417, end: 20130808
  4. RISPERIDONE. [Suspect]
     Active Substance: RISPERIDONE
     Indication: SCHIZOPHRENIA
     Route: 048
     Dates: start: 201608
  5. RISPERIDONE. [Suspect]
     Active Substance: RISPERIDONE
     Indication: SLEEP DISORDER
     Dosage: AT VARYING DOSE OF 2 MG AND 3 MG
     Route: 048
     Dates: start: 20130417, end: 20130808
  6. RISPERDAL CONSTA [Suspect]
     Active Substance: RISPERIDONE
     Indication: SCHIZOPHRENIA
     Route: 030
     Dates: start: 20050815
  7. RISPERDAL [Suspect]
     Active Substance: RISPERIDONE
     Indication: SCHIZOPHRENIA
     Route: 048
     Dates: start: 20050815

REACTIONS (2)
  - Emotional distress [Unknown]
  - Gynaecomastia [Unknown]
